FAERS Safety Report 26145276 (Version 1)
Quarter: 2025Q4

REPORT INFORMATION
  Report Type: Report from Study
  Country: US (occurrence: US)
  Receive Date: 20251211
  Receipt Date: 20251211
  Transmission Date: 20260118
  Serious: Yes (Life-Threatening, Other)
  Sender: PFIZER
  Company Number: US-PFIZER INC-PV202500145156

PATIENT

DRUGS (2)
  1. BEVACIZUMAB [Suspect]
     Active Substance: BEVACIZUMAB
     Indication: Glioma
     Dosage: UNKNOWN
  2. IVOSIDENIB [Concomitant]
     Active Substance: IVOSIDENIB
     Indication: Glioma
     Dosage: UNKNOWN

REACTIONS (1)
  - Haemorrhage intracranial [Unknown]
